FAERS Safety Report 24753060 (Version 1)
Quarter: 2024Q4

REPORT INFORMATION
  Report Type: Spontaneous
  Country: US (occurrence: US)
  Receive Date: 20241219
  Receipt Date: 20241219
  Transmission Date: 20250115
  Serious: Yes (Hospitalization)
  Sender: CSL BEHRING
  Company Number: US-BEH-2024187701

PATIENT
  Age: 3 Year
  Sex: Female

DRUGS (2)
  1. HUMATE-P [Suspect]
     Active Substance: HUMAN COAGULATION FACTOR VIII/VON WILLEBRAND FACTOR COMPLEX
     Indication: Factor VIII deficiency
     Dosage: 732 IU, PRN
     Route: 042
     Dates: start: 202407
  2. RECOTHROM [Concomitant]
     Active Substance: THROMBIN ALFA

REACTIONS (1)
  - Tonsillectomy [Recovering/Resolving]
